FAERS Safety Report 8061852 (Version 3)
Quarter: 2013Q1

REPORT INFORMATION
  Report Type: Spontaneous
  Country: US (occurrence: US)
  Receive Date: 20110729
  Receipt Date: 20130213
  Transmission Date: 20140127
  Serious: Yes (Life-Threatening, Hospitalization)
  Sender: FDA-Public Use
  Company Number: US-BAYER-2011-066488

PATIENT
  Age: 38 Year
  Sex: Female
  Weight: 72.56 kg

DRUGS (11)
  1. YAZ [Suspect]
     Indication: ADNEXA UTERI PAIN
     Dosage: UNK
     Dates: start: 2003
  2. YAZ [Suspect]
     Indication: MENSTRUATION IRREGULAR
     Dosage: UNK
     Dates: start: 200808, end: 200908
  3. SOMA [Concomitant]
     Dosage: 350 MG,DAILY
     Route: 048
     Dates: start: 20090831
  4. AMBIEN [Concomitant]
     Dosage: 10 MG, DAILY
     Route: 048
     Dates: start: 20090831
  5. NORCO [Concomitant]
     Route: 048
  6. HYDROCODONE W/PARACETAMOL [Concomitant]
     Dosage: UNK
     Route: 048
     Dates: start: 20090707
  7. ZOSTRIX [Concomitant]
     Indication: MUSCULOSKELETAL PAIN
     Dosage: UNK
     Route: 061
     Dates: start: 20090811
  8. VICODIN [Concomitant]
  9. NAPROXEN [Concomitant]
  10. TYLENOL [Concomitant]
  11. PROTONIX [Concomitant]

REACTIONS (11)
  - Thrombosis [None]
  - Portal vein thrombosis [None]
  - Splenic vein thrombosis [None]
  - Intrahepatic portal hepatic venous fistula [None]
  - Gallbladder disorder [None]
  - Off label use [None]
  - Pain [None]
  - Injury [None]
  - Pain [None]
  - General physical health deterioration [None]
  - Emotional distress [None]
